FAERS Safety Report 5688670-1 (Version None)
Quarter: 2008Q1

REPORT INFORMATION
  Report Type: 
  Country: None (occurrence: None)
  Receive Date: 20080331
  Receipt Date: 20080319
  Transmission Date: 20080703
  Serious: Yes (Hospitalization, Other)
  Sender: FDA-Public Use
  Company Number: JP-NOVOPROD-273479

PATIENT
  Age: 37 Year
  Sex: Female
  Weight: 42 kg

DRUGS (3)
  1. NOVORAPID CHU FLEXPEN [Suspect]
     Indication: TYPE 1 DIABETES MELLITUS
     Dosage: UNK IU, UNK
     Route: 058
  2. NOVOLIN N [Suspect]
     Indication: TYPE 1 DIABETES MELLITUS
     Route: 058
  3. LEVEMIR [Suspect]
     Indication: TYPE 1 DIABETES MELLITUS

REACTIONS (4)
  - DIABETIC NEUROPATHY [None]
  - DIPLOPIA [None]
  - HYPOGLYCAEMIA [None]
  - RETINAL HAEMORRHAGE [None]
